FAERS Safety Report 13028600 (Version 2)
Quarter: 2017Q1

REPORT INFORMATION
  Report Type: Spontaneous
  Country: US (occurrence: US)
  Receive Date: 20161214
  Receipt Date: 20170125
  Transmission Date: 20170428
  Serious: Yes (Other)
  Sender: FDA-Public Use
  Company Number: US-SMITH AND NEPHEW, INC-2016SMT01076

PATIENT
  Age: 49 Year
  Sex: Female
  Weight: 111.11 kg

DRUGS (28)
  1. XANAX [Concomitant]
     Active Substance: ALPRAZOLAM
  2. MIRALAX [Concomitant]
     Active Substance: POLYETHYLENE GLYCOL 3350
  3. ZEMPLAR [Concomitant]
     Active Substance: PARICALCITOL
  4. PHENERGAN [Concomitant]
     Active Substance: PROMETHAZINE HYDROCHLORIDE
  5. MORPHINE [Concomitant]
     Active Substance: MORPHINE
  6. COLCRYS [Concomitant]
     Active Substance: COLCHICINE
  7. POTASSIUM CHLORIDE. [Concomitant]
     Active Substance: POTASSIUM CHLORIDE
  8. GLIPIZIDE. [Concomitant]
     Active Substance: GLIPIZIDE
  9. WARFARIN [Concomitant]
     Active Substance: WARFARIN
  10. GABAPENTIN. [Concomitant]
     Active Substance: GABAPENTIN
  11. TIZANIDINE. [Concomitant]
     Active Substance: TIZANIDINE
  12. OMEPRAZOLE. [Concomitant]
     Active Substance: OMEPRAZOLE
  13. SPIRONOLACTONE. [Concomitant]
     Active Substance: SPIRONOLACTONE
  14. CILOSTAZOL. [Concomitant]
     Active Substance: CILOSTAZOL
  15. FUROSEMIDE. [Concomitant]
     Active Substance: FUROSEMIDE
  16. PROAIR HFA [Concomitant]
     Active Substance: ALBUTEROL SULFATE
  17. HUMULIN NOS [Concomitant]
     Active Substance: INSULIN HUMAN
  18. OXYCODONE [Concomitant]
     Active Substance: OXYCODONE
  19. OXYBUTYNIN [Concomitant]
     Active Substance: OXYBUTYNIN
  20. PLAQUENIL [Concomitant]
     Active Substance: HYDROXYCHLOROQUINE SULFATE
  21. NOVOLOG [Concomitant]
     Active Substance: INSULIN ASPART
  22. BUPROPION. [Concomitant]
     Active Substance: BUPROPION
  23. FOLIC ACID. [Concomitant]
     Active Substance: FOLIC ACID
  24. REGRANEX [Suspect]
     Active Substance: BECAPLERMIN
     Indication: ULCER
     Dosage: UNK UNK, LEFT ON FOR 24-48 HOURS ONCE APPLIED
     Route: 061
     Dates: start: 20161104
  25. REGRANEX [Suspect]
     Active Substance: BECAPLERMIN
     Dosage: UNK UNK, EVERY 48 HOURS
     Route: 061
     Dates: start: 20161104
  26. SIMVASTATIN. [Concomitant]
     Active Substance: SIMVASTATIN
  27. MIRAPEX [Concomitant]
     Active Substance: PRAMIPEXOLE DIHYDROCHLORIDE
  28. ALLOPURINOL. [Concomitant]
     Active Substance: ALLOPURINOL

REACTIONS (3)
  - Wound infection bacterial [Unknown]
  - Ulcer [Not Recovered/Not Resolved]
  - Incorrect drug administration duration [Not Recovered/Not Resolved]

NARRATIVE: CASE EVENT DATE: 201611
